FAERS Safety Report 22356696 (Version 3)
Quarter: 2024Q1

REPORT INFORMATION
  Report Type: Report from Study
  Country: US (occurrence: US)
  Receive Date: 20230523
  Receipt Date: 20240315
  Transmission Date: 20240410
  Serious: No
  Sender: FDA-Public Use
  Company Number: US-002147023-NVSC2023US118041

PATIENT
  Sex: Male

DRUGS (2)
  1. ILARIS [Suspect]
     Active Substance: CANAKINUMAB
     Indication: Pyrexia
     Dosage: 150 MG, Q 8 WEEKS
     Route: 058
     Dates: start: 20190111
  2. ILARIS [Suspect]
     Active Substance: CANAKINUMAB
     Dosage: UNK
     Route: 058
     Dates: end: 202310

REACTIONS (6)
  - Pyrexia [Recovering/Resolving]
  - Arthralgia [Unknown]
  - Inflammation [Unknown]
  - Gait disturbance [Unknown]
  - Pain [Unknown]
  - Gastroenteritis viral [Recovered/Resolved]
